FAERS Safety Report 25755341 (Version 1)
Quarter: 2025Q3

REPORT INFORMATION
  Report Type: Other
  Country: US (occurrence: US)
  Receive Date: 20250903
  Receipt Date: 20250903
  Transmission Date: 20251021
  Serious: Yes (Other)
  Sender: CAPLIN STERILES LIMITED
  Company Number: US-Caplin Steriles Limited-2183715

PATIENT
  Age: 79 Year
  Sex: Male
  Weight: 96 kg

DRUGS (1)
  1. ETOMIDATE [Suspect]
     Active Substance: ETOMIDATE
     Indication: Acute respiratory failure

REACTIONS (3)
  - Adrenocortical insufficiency acute [Unknown]
  - Hypotension [Unknown]
  - Cardiac arrest [Unknown]
